FAERS Safety Report 20416144 (Version 1)
Quarter: 2022Q1

REPORT INFORMATION
  Report Type: Spontaneous
  Country: US (occurrence: None)
  Receive Date: 20220201
  Receipt Date: 20220201
  Transmission Date: 20220423
  Serious: No
  Sender: FDA-Public Use
  Company Number: None

PATIENT
  Sex: Male

DRUGS (1)
  1. XGEVA [Suspect]
     Active Substance: DENOSUMAB
     Indication: Product used for unknown indication
     Dosage: OTHER STRENGTH : 120/1.7 MG;?OTHER FREQUENCY : EVERY 3 MONTHS;?
     Route: 058
     Dates: start: 202103

REACTIONS (2)
  - Dental operation [None]
  - Therapy interrupted [None]
